FAERS Safety Report 9283244 (Version 1)
Quarter: 2013Q2

REPORT INFORMATION
  Report Type: Spontaneous
  Country: US (occurrence: US)
  Receive Date: 20130510
  Receipt Date: 20130510
  Transmission Date: 20140414
  Serious: No
  Sender: FDA-Public Use
  Company Number: US-GLAXOSMITHKLINE-A0991632A

PATIENT
  Age: 63 Year
  Sex: Female

DRUGS (7)
  1. TYKERB [Suspect]
     Indication: BREAST CANCER
     Dosage: 500MG TWICE PER DAY
     Route: 048
     Dates: start: 20120724, end: 201208
  2. LOSARTAN WITH HYDROCHLOROTHIAZIDE [Concomitant]
  3. CITALOPRAM HYDROBROMIDE [Concomitant]
  4. TRAMADOL HCL [Concomitant]
  5. ZANTAC [Concomitant]
  6. MULTIVITAMIN [Concomitant]
  7. CELEXA [Concomitant]

REACTIONS (4)
  - Weight decreased [Unknown]
  - Nausea [Unknown]
  - Vomiting [Unknown]
  - Blood potassium decreased [Unknown]
